FAERS Safety Report 5008286-X (Version None)
Quarter: 2006Q1

REPORT INFORMATION
  Report Type: 
  Country: None (occurrence: None)
  Receive Date: 20060331
  Receipt Date: 20050713
  Transmission Date: 20060701
  Serious: Yes (Life-Threatening)
  Sender: FDA-Public Use
  Company Number: WAES 0507USA01849

PATIENT
  Age: 60 Year
  Sex: Male

DRUGS (15)
  1. CANCIDAS [Suspect]
     Indication: PERITONITIS
     Dosage: 50 MG/DAILY/IV
     Route: 042
     Dates: start: 20050427, end: 20050613
  2. AZACTAM [Concomitant]
  3. FLAGYL [Concomitant]
  4. LOMOTIL [Concomitant]
  5. LOPRESSOR [Concomitant]
  6. MAXIPIME [Concomitant]
  7. NORVASC [Concomitant]
  8. PROTONIX [Concomitant]
  9. TYLENOL (CAPLET) [Concomitant]
  10. UNASYN (AMPICILLIN SODIUM (+) [Concomitant]
  11. AMINO ACIDS [Concomitant]
  12. GENTAMICIN [Concomitant]
  13. LIPIDS [Concomitant]
  14. MORPHINE SULFATE [Concomitant]
  15. OCTREOTIDE ACETATE [Concomitant]

REACTIONS (2)
  - BLOOD ALKALINE PHOSPHATASE INCREASED [None]
  - HEPATIC ENZYME INCREASED [None]
